FAERS Safety Report 8615296-X (Version None)
Quarter: 2012Q3

REPORT INFORMATION
  Report Type: 
  Country: None (occurrence: None)
  Receive Date: 20120823
  Receipt Date: 20120816
  Transmission Date: 20120928
  Serious: Yes (Other)
  Sender: FDA-Public Use
  Company Number: US-ABBOTT-12P-163-0969536-00

PATIENT
  Sex: Male
  Weight: 97.61 kg

DRUGS (1)
  1. NIASPAN [Suspect]
     Indication: LOW DENSITY LIPOPROTEIN INCREASED
     Dosage: EVERY NIGHT
     Dates: start: 20021201

REACTIONS (5)
  - PROSTATE CANCER [None]
  - PARAESTHESIA [None]
  - VENA CAVA THROMBOSIS [None]
  - FLUSHING [None]
  - ERYTHEMA [None]
